FAERS Safety Report 5485589-6 (Version None)
Quarter: 2007Q4

REPORT INFORMATION
  Report Type: 
  Country: None (occurrence: None)
  Receive Date: 20071011
  Receipt Date: 20071011
  Transmission Date: 20080405
  Serious: Yes (Other)
  Sender: FDA-Public Use
  Company Number: None

PATIENT
  Age: 77 Year
  Sex: Female
  Weight: 58.9676 kg

DRUGS (1)
  1. FELODIPINE [Suspect]
     Indication: HYPERTENSION
     Dosage: 10 MG EVERY DAY BY MOUTH
     Route: 048
     Dates: start: 20070525, end: 20070529

REACTIONS (5)
  - DIZZINESS [None]
  - DRUG ERUPTION [None]
  - ERYTHEMA [None]
  - OEDEMA PERIPHERAL [None]
  - TREMOR [None]
